FAERS Safety Report 8387792-4 (Version None)
Quarter: 2012Q2

REPORT INFORMATION
  Report Type: 
  Country: None (occurrence: None)
  Receive Date: 20120525
  Receipt Date: 20120517
  Transmission Date: 20120825
  Serious: Yes (Other)
  Sender: FDA-Public Use
  Company Number: MT-GLAXOSMITHKLINE-B0803592A

PATIENT
  Age: 82 Year
  Sex: Female
  Weight: 67 kg

DRUGS (5)
  1. LORAZEPAM [Concomitant]
     Indication: SEDATION
     Dosage: 1MG AT NIGHT
     Route: 065
  2. PAROXETINE [Suspect]
     Indication: DEPRESSION
     Route: 065
  3. PERINDOPRIL ERBUMINE [Concomitant]
     Dosage: 4MG AT NIGHT
     Route: 065
  4. LACTULOSE [Concomitant]
     Dosage: 10ML TWICE PER DAY
     Route: 065
  5. BUMETANIDE [Concomitant]
     Dosage: 1MG PER DAY
     Route: 065

REACTIONS (4)
  - HYPOGLYCAEMIA [None]
  - BLOOD CREATININE INCREASED [None]
  - AGITATION [None]
  - CONFUSIONAL STATE [None]
